FAERS Safety Report 6781152-5 (Version None)
Quarter: 2010Q2

REPORT INFORMATION
  Report Type: 
  Country: None (occurrence: None)
  Receive Date: 20100621
  Receipt Date: 20100614
  Transmission Date: 20101027
  Serious: No
  Sender: FDA-Public Use
  Company Number: US-BAYER-201016794BCC

PATIENT
  Age: 82 Year
  Sex: Female
  Weight: 82 kg

DRUGS (9)
  1. ALEVE (CAPLET) [Suspect]
     Indication: ARTHRITIS
     Dosage: UNIT DOSE: 220 MG
     Route: 048
     Dates: end: 20060101
  2. ALEVE (CAPLET) [Suspect]
     Dosage: TOTAL DAILY DOSE: 440 MG  UNIT DOSE: 220 MG
     Route: 048
     Dates: start: 20100601, end: 20100601
  3. VERAPAMIL [Concomitant]
  4. BENICAR [Concomitant]
  5. LASIX [Concomitant]
  6. KLOR-CON [Concomitant]
  7. CENTRUM SILVER [Concomitant]
  8. VICODIN [Concomitant]
     Dosage: AS USED: 325 MG  UNIT DOSE: 750 MG
  9. DARVOCET [Concomitant]

REACTIONS (1)
  - BLOOD PRESSURE INCREASED [None]
